FAERS Safety Report 19862520 (Version 1)
Quarter: 2021Q3

REPORT INFORMATION
  Report Type: Spontaneous
  Country: PL (occurrence: PL)
  Receive Date: 20210921
  Receipt Date: 20210921
  Transmission Date: 20211014
  Serious: Yes (Death, Other)
  Sender: FDA-Public Use
  Company Number: PL-MYLANLABS-2021M1063266

PATIENT
  Age: 68 Year
  Sex: Male

DRUGS (15)
  1. CYCLONAMINE [Concomitant]
     Active Substance: ETHAMSYLATE
     Dosage: 3X1 TABLET ? IN THE CASE OF PLT {50 G / L.
  2. ESTAZOLAM. [Concomitant]
     Active Substance: ESTAZOLAM
     Dosage: AD HOC
  3. MEGACE [Concomitant]
     Active Substance: MEGESTROL ACETATE
     Dosage: 1X 10ML IN THE MORNING.
  4. HYDROCHLOROTHIAZIDE. [Concomitant]
     Active Substance: HYDROCHLOROTHIAZIDE
     Indication: OEDEMA PERIPHERAL
     Dosage: 12.5 MILLIGRAM, ON AN AD?HOC BASIS IN THE CASE OF EDEMA OF THE LOWER EXTREMITIES
  5. DEXAMETHASONE. [Suspect]
     Active Substance: DEXAMETHASONE
     Indication: PLASMA CELL MYELOMA
     Dosage: UNK
     Route: 065
  6. CLEXANE [Concomitant]
     Active Substance: ENOXAPARIN SODIUM
     Dosage: 20MG 1X SUBCUTANEOUS IN THE EVENING ? UNDER STRICT MORPHOLOGY CONTROL ? IF PLT {50 G / L DECREASES O
     Route: 058
  7. HEVIRAN                            /00587301/ [Concomitant]
     Active Substance: ACYCLOVIR
     Dosage: 800 MILLIGRAM, 1X1 TABL.
  8. MATRIFEN [Concomitant]
     Active Substance: FENTANYL
     Dosage: PLASTER EVERY 3 DAYS ? NEXT REPLACEMENT IN 3 DAYS
  9. ALKERAN [Concomitant]
     Active Substance: MELPHALAN
     Dosage: 6 MILLIGRAM, QD
  10. DARZALEX [Suspect]
     Active Substance: DARATUMUMAB
     Indication: PLASMA CELL MYELOMA
     Dosage: 800 MILLIGRAM
     Route: 042
     Dates: start: 20191015, end: 20191224
  11. VELCADE [Suspect]
     Active Substance: BORTEZOMIB
     Indication: PLASMA CELL MYELOMA
     Dosage: UNK
     Route: 065
  12. ZOLEDRONIC ACID [Concomitant]
     Active Substance: ZOLEDRONIC ACID
     Dosage: 4 MILLIGRAM, 4XW, NEXT APPLICATION AFTER 24/01/2020.
     Route: 042
  13. DOLTARD [Concomitant]
     Dosage: 30 MILLIGRAM, 2X
  14. ESOMEPRAZOLE MAGNESIUM. [Concomitant]
     Active Substance: ESOMEPRAZOLE MAGNESIUM
     Dosage: 2X1 CAPSULES ON AN EMPTY STOMACH (ON AN EMPTY STOMACH, I.E. AT LEAST 2 HOURS AFTER THE LAST MEAL
  15. MILURIT [Concomitant]
     Active Substance: ALLOPURINOL
     Dosage: 100 MILLIGRAM, 2X1 TABL. FOR A WEEK AND THEN 1X1.

REACTIONS (4)
  - Anal haemorrhage [Unknown]
  - Plasma cell myeloma [Fatal]
  - Monoparesis [Fatal]
  - Spinal cord compression [Fatal]

NARRATIVE: CASE EVENT DATE: 201912
